FAERS Safety Report 7339543-X (Version None)
Quarter: 2011Q1

REPORT INFORMATION
  Report Type: 
  Country: None (occurrence: None)
  Receive Date: 20110308
  Receipt Date: 20110217
  Transmission Date: 20110831
  Serious: No
  Sender: FDA-Public Use
  Company Number: US-AMGEN-USASP2011009518

PATIENT
  Sex: Female

DRUGS (1)
  1. PROLIA [Suspect]
     Indication: OSTEOPOROSIS POSTMENOPAUSAL
     Dosage: UNK
     Dates: start: 20110211

REACTIONS (8)
  - INFLUENZA LIKE ILLNESS [None]
  - EXFOLIATIVE RASH [None]
  - DRY MOUTH [None]
  - RASH PAPULAR [None]
  - RASH PRURITIC [None]
  - HYPOPHAGIA [None]
  - RASH PUSTULAR [None]
  - UPPER RESPIRATORY TRACT INFECTION [None]
